FAERS Safety Report 24424610 (Version 1)
Quarter: 2024Q4

REPORT INFORMATION
  Report Type: Report from Study
  Country: BR (occurrence: BR)
  Receive Date: 20241010
  Receipt Date: 20241010
  Transmission Date: 20250114
  Serious: Yes (Other)
  Sender: ELI LILLY AND CO
  Company Number: BR-Merck Healthcare KGaA-2024053034

PATIENT
  Age: 57 Year
  Sex: Female

DRUGS (1)
  1. CETUXIMAB [Suspect]
     Active Substance: CETUXIMAB
     Indication: Colon cancer metastatic
     Dosage: UNK UNK, 2/M (ONCE IN 15 DAYS)
     Route: 042

REACTIONS (2)
  - Weight decreased [Recovered/Resolved]
  - Off label use [Unknown]
